FAERS Safety Report 4862534-5 (Version None)
Quarter: 2005Q4

REPORT INFORMATION
  Report Type: 
  Country: None (occurrence: None)
  Receive Date: 20051221
  Receipt Date: 20051212
  Transmission Date: 20060501
  Serious: Yes (Other)
  Sender: FDA-Public Use
  Company Number: US-GLAXOSMITHKLINE-A0586313A

PATIENT
  Sex: Male

DRUGS (1)
  1. AVODART [Suspect]
     Indication: PROSTATIC DISORDER
     Route: 048

REACTIONS (1)
  - URINARY INCONTINENCE [None]
